FAERS Safety Report 20065632 (Version 1)
Quarter: 2021Q4

REPORT INFORMATION
  Report Type: Spontaneous
  Country: CL (occurrence: CL)
  Receive Date: 20211113
  Receipt Date: 20211113
  Transmission Date: 20220303
  Serious: Yes (Death, Hospitalization, Other)
  Sender: FDA-Public Use
  Company Number: CL-NOVARTISPH-NVSC2021CL259802

PATIENT
  Age: 28 Year
  Sex: Male

DRUGS (26)
  1. FILGRASTIM [Suspect]
     Active Substance: FILGRASTIM
     Indication: Neutropenia
     Dosage: 300 MG, QD
     Route: 058
     Dates: start: 20211009, end: 20211009
  2. QUETIAPINE [Concomitant]
     Active Substance: QUETIAPINE
     Indication: Insomnia
     Dosage: 25 MG, QD
     Route: 048
     Dates: start: 20210923, end: 20210926
  3. QUETIAPINE [Concomitant]
     Active Substance: QUETIAPINE
     Dosage: 25 MG, QD
     Route: 048
     Dates: start: 20211003, end: 20211010
  4. ONDANSETRON [Concomitant]
     Active Substance: ONDANSETRON
     Indication: Nausea
     Dosage: 8 MG, PRN (WHEN NEEDED)
     Route: 040
     Dates: start: 20210924, end: 20210927
  5. ONDANSETRON [Concomitant]
     Active Substance: ONDANSETRON
     Dosage: 8 MG, QD
     Route: 060
     Dates: start: 20211009, end: 20211009
  6. ACYCLOVIR [Concomitant]
     Active Substance: ACYCLOVIR
     Indication: Herpes virus infection
     Dosage: 400 MG, BID
     Route: 048
     Dates: start: 20210922, end: 20211010
  7. LEVOFLOXACIN [Concomitant]
     Active Substance: LEVOFLOXACIN
     Indication: Antibiotic prophylaxis
     Dosage: 500 MG, QD
     Route: 048
     Dates: start: 20211003, end: 20211010
  8. OMEPRAZOLE [Concomitant]
     Active Substance: OMEPRAZOLE
     Indication: Prophylaxis against gastrointestinal ulcer
     Dosage: 20 MG, QD
     Route: 048
     Dates: start: 20210922, end: 20211009
  9. SERTRALINE [Concomitant]
     Active Substance: SERTRALINE HYDROCHLORIDE
     Indication: Affective disorder
     Dosage: 50 MG, QD
     Route: 048
     Dates: start: 20210922, end: 20211009
  10. MELATONIN [Concomitant]
     Active Substance: MELATONIN
     Indication: Insomnia
     Dosage: 3 MG, QD
     Route: 048
     Dates: start: 20211007, end: 20211010
  11. FLUCONAZOLE [Concomitant]
     Active Substance: FLUCONAZOLE
     Indication: Antifungal prophylaxis
     Dosage: 400 MG, QD
     Route: 048
     Dates: start: 20211003, end: 20211004
  12. FLUCONAZOLE [Concomitant]
     Active Substance: FLUCONAZOLE
     Dosage: 200 MG, QD
     Route: 048
     Dates: start: 20211005, end: 20211010
  13. ZOPICLONE [Concomitant]
     Active Substance: ZOPICLONE
     Indication: Insomnia
     Dosage: 7500 MG, QD
     Route: 048
     Dates: start: 20210926, end: 20210928
  14. ZOPICLONE [Concomitant]
     Active Substance: ZOPICLONE
     Dosage: 7500 MG, QD
     Route: 048
     Dates: start: 20211002, end: 20211010
  15. ACETAMINOPHEN [Concomitant]
     Active Substance: ACETAMINOPHEN
     Indication: Pain
     Dosage: 1 G, QD
     Route: 048
     Dates: start: 20211009, end: 20211009
  16. ACETAMINOPHEN [Concomitant]
     Active Substance: ACETAMINOPHEN
     Dosage: 1 G, QID (4 TIMES A DAY)
     Route: 042
     Dates: start: 20211010, end: 20211010
  17. PARECOXIB [Concomitant]
     Active Substance: PARECOXIB
     Indication: Pain
     Dosage: 40 MG, PRN
     Route: 048
     Dates: start: 20211001, end: 20211010
  18. TRANEXAMIC ACID [Concomitant]
     Active Substance: TRANEXAMIC ACID
     Indication: Pain
     Dosage: 500 MG, QD
     Route: 048
     Dates: start: 20211009, end: 20211009
  19. KETOROLAC [Concomitant]
     Active Substance: KETOROLAC TROMETHAMINE
     Indication: Pain
     Dosage: 30 MG, QD
     Route: 042
     Dates: start: 20211009, end: 20211009
  20. MEPERIDINE [Concomitant]
     Active Substance: MEPERIDINE
     Indication: Pain
     Dosage: 3 MG, QD
     Route: 042
     Dates: start: 20211009, end: 20211009
  21. METHADONE [Concomitant]
     Active Substance: METHADONE HYDROCHLORIDE
     Indication: Pain
     Dosage: 3 MG, QD
     Route: 042
     Dates: start: 20211009, end: 20211009
  22. FENTANYL [Concomitant]
     Active Substance: FENTANYL
     Indication: Pain
     Dosage: 25 UG, TID
     Route: 042
     Dates: start: 20211009, end: 20211009
  23. FENTANYL [Concomitant]
     Active Substance: FENTANYL
     Indication: Sedation
     Dosage: 3 MICROMOLE PER KILOGRAM, CONT, HOURS
     Route: 041
     Dates: start: 20211011, end: 20211013
  24. FENTANYL [Concomitant]
     Active Substance: FENTANYL
     Dosage: 3.5 MICROMOLE PER KILOGRAM, CONT, HOURS
     Route: 041
     Dates: start: 20211011, end: 20211013
  25. DALTEPARIN [Concomitant]
     Active Substance: DALTEPARIN
     Indication: Coagulopathy
     Dosage: 5000 IU, QD
     Route: 058
     Dates: start: 20210922, end: 20211004
  26. DALTEPARIN [Concomitant]
     Active Substance: DALTEPARIN
     Indication: Blood thrombin
     Dosage: 5000 IU, QD
     Route: 042
     Dates: start: 20211009, end: 20211010

REACTIONS (15)
  - Hypoxic-ischaemic encephalopathy [Fatal]
  - Congenital brain damage [Fatal]
  - Altered state of consciousness [Unknown]
  - Oxygen saturation decreased [Unknown]
  - Muscle rigidity [Unknown]
  - Tachycardia [Unknown]
  - Cerebellar infarction [Unknown]
  - Precursor T-lymphoblastic lymphoma/leukaemia [Unknown]
  - Superior vena cava syndrome [Unknown]
  - Epistaxis [Unknown]
  - Nausea [Unknown]
  - Vomiting [Unknown]
  - Chills [Unknown]
  - Dyspnoea [Unknown]
  - Bone pain [Unknown]

NARRATIVE: CASE EVENT DATE: 20210101
